FAERS Safety Report 4541578-7 (Version None)
Quarter: 2004Q4

REPORT INFORMATION
  Report Type: 
  Country: None (occurrence: None)
  Receive Date: 20041230
  Receipt Date: 20041215
  Transmission Date: 20050328
  Serious: Yes (Death, Hospitalization)
  Sender: FDA-Public Use
  Company Number: 200419627US

PATIENT
  Weight: 85.9 kg

DRUGS (22)
  1. TAXOTERE [Suspect]
     Indication: PANCREATIC CARCINOMA METASTATIC
     Route: 042
     Dates: start: 20040614, end: 20040816
  2. GEMZAR [Suspect]
     Indication: PANCREATIC CARCINOMA METASTATIC
     Dates: start: 20040325, end: 20040816
  3. DOXIL [Concomitant]
     Indication: PANCREATIC CARCINOMA METASTATIC
     Dosage: DOSE: UNK
     Dates: end: 20040609
  4. LOVENOX [Concomitant]
     Indication: PARANEOPLASTIC SYNDROME
  5. COUMADIN [Concomitant]
     Indication: COAGULOPATHY
  6. XELODA [Concomitant]
     Indication: PANCREATIC CARCINOMA METASTATIC
     Route: 042
     Dates: start: 20040611, end: 20040823
  7. K-DUR [Concomitant]
  8. PLETAL [Concomitant]
  9. EFFEXOR [Concomitant]
  10. SYNTHROID [Concomitant]
  11. DURICEF [Concomitant]
     Dosage: DOSE: UNK
  12. BUMEX [Concomitant]
  13. DIFLUCAN [Concomitant]
  14. PANCRELIPASE [Concomitant]
  15. ANZEMET [Concomitant]
  16. COMPAZINE [Concomitant]
  17. PERCOCET [Concomitant]
     Indication: PAIN
  18. ZOFRAN [Concomitant]
  19. MEGACE [Concomitant]
  20. BEXTRA [Concomitant]
  21. PANCREASE MT [Concomitant]
     Dosage: DOSE: UNK
  22. OXYCONTIN [Concomitant]

REACTIONS (42)
  - ABDOMINAL DISTENSION [None]
  - ACUTE PULMONARY OEDEMA [None]
  - ANAEMIA [None]
  - ANGIONEUROTIC OEDEMA [None]
  - ANGIOPATHY [None]
  - ANISOCYTOSIS [None]
  - ASCITES [None]
  - ASTHENIA [None]
  - ATELECTASIS [None]
  - BACTERIAL INFECTION [None]
  - BLOOD CULTURE POSITIVE [None]
  - CHEST X-RAY ABNORMAL [None]
  - COAGULOPATHY [None]
  - CONDITION AGGRAVATED [None]
  - COUGH [None]
  - DEEP VEIN THROMBOSIS [None]
  - DEPRESSED LEVEL OF CONSCIOUSNESS [None]
  - DISEASE PROGRESSION [None]
  - DRUG INTERACTION [None]
  - DYSPNOEA [None]
  - GENERALISED OEDEMA [None]
  - HAEMOLYTIC URAEMIC SYNDROME [None]
  - HAEMORRHAGE [None]
  - KLEBSIELLA INFECTION [None]
  - LUNG INFILTRATION [None]
  - NEPHROTIC SYNDROME [None]
  - PANCREATIC MASS [None]
  - PANCYTOPENIA [None]
  - PERFORMANCE STATUS DECREASED [None]
  - PLATELET MORPHOLOGY ABNORMAL [None]
  - PLEURAL EFFUSION [None]
  - POIKILOCYTOSIS [None]
  - POLYCHROMASIA [None]
  - RED BLOOD CELL SCHISTOCYTES PRESENT [None]
  - RENAL DISORDER [None]
  - RESPIRATORY DISTRESS [None]
  - RESPIRATORY FAILURE [None]
  - SPLEEN DISORDER [None]
  - SPLENIC CYST [None]
  - THROMBOTIC THROMBOCYTOPENIC PURPURA [None]
  - URINE OUTPUT DECREASED [None]
  - WEIGHT INCREASED [None]
